FAERS Safety Report 11400612 (Version 1)
Quarter: 2015Q3

REPORT INFORMATION
  Report Type: Spontaneous
  Country: JP (occurrence: JP)
  Receive Date: 20150820
  Receipt Date: 20150820
  Transmission Date: 20151125
  Serious: Yes (Other)
  Sender: FDA-Public Use
  Company Number: JP-PFIZER INC-2015277559

PATIENT
  Age: 45 Year
  Sex: Male

DRUGS (2)
  1. AMOXICILLIN. [Suspect]
     Active Substance: AMOXICILLIN
     Indication: HELICOBACTER TEST POSITIVE
     Dosage: UNK
     Dates: start: 201410
  2. METRONIDAZOLE. [Suspect]
     Active Substance: METRONIDAZOLE
     Indication: HELICOBACTER TEST POSITIVE
     Dosage: UNK
     Dates: start: 201410

REACTIONS (1)
  - Colitis ulcerative [Recovered/Resolved]
